FAERS Safety Report 7780592-5 (Version None)
Quarter: 2011Q3

REPORT INFORMATION
  Report Type: 
  Country: None (occurrence: None)
  Receive Date: 20110927
  Receipt Date: 20100820
  Transmission Date: 20111222
  Serious: No
  Sender: FDA-Public Use
  Company Number: US-BRISTOL-MYERS SQUIBB COMPANY-15039688

PATIENT
  Age: 73 Year
  Sex: Female
  Weight: 63 kg

DRUGS (2)
  1. AVAPRO [Suspect]
     Indication: HYPERTENSION
     Dosage: CUMULATIVE 300MG
     Route: 048
     Dates: start: 20100323, end: 20100324
  2. SYNTHROID [Concomitant]
     Route: 048
     Dates: start: 20100101

REACTIONS (7)
  - MALAISE [None]
  - CONSTIPATION [None]
  - ARTHRITIS [None]
  - MUSCULAR WEAKNESS [None]
  - ABASIA [None]
  - MYALGIA [None]
  - MUSCLE SPASMS [None]
